FAERS Safety Report 4512619-8 (Version None)
Quarter: 2004Q4

REPORT INFORMATION
  Report Type: 
  Country: None (occurrence: None)
  Receive Date: 20041008
  Receipt Date: 20040910
  Transmission Date: 20050328
  Serious: No
  Sender: FDA-Public Use
  Company Number: 2004S1000185

PATIENT
  Sex: Female
  Weight: 100 kg

DRUGS (2)
  1. CUBICIN [Suspect]
     Indication: ARTHRITIS INFECTIVE
     Dosage: 600 MG; Q8H; IV
     Route: 042
     Dates: start: 20040909
  2. CLINDAMYCIN HCL [Concomitant]

REACTIONS (1)
  - MEDICATION ERROR [None]
